FAERS Safety Report 12545101 (Version 2)
Quarter: 2016Q3

REPORT INFORMATION
  Report Type: Report from Study
  Country: US (occurrence: US)
  Receive Date: 20160711
  Receipt Date: 20160819
  Transmission Date: 20161109
  Serious: Yes (Hospitalization)
  Sender: FDA-Public Use
  Company Number: US-JNJFOC-20160704720

PATIENT
  Sex: Female
  Weight: 51 kg

DRUGS (11)
  1. PROVENTIL [Concomitant]
     Active Substance: ALBUTEROL
     Dosage: INHALE 1-2 PUFFS EVERY 4 TO 6 HOURS AS NEEDED
     Dates: start: 20151130
  2. ULTRAM [Concomitant]
     Active Substance: TRAMADOL HYDROCHLORIDE
     Dosage: 1 DF, THREE TIMES DAILY AS PRN
     Route: 048
     Dates: start: 20160718
  3. ZOFRAN [Concomitant]
     Active Substance: ONDANSETRON HYDROCHLORIDE
     Indication: NAUSEA
     Dosage: 1 DF, EVERY 8 HOURS AS NEEDED
     Route: 048
     Dates: start: 20151028
  4. ALLOPURINOL. [Concomitant]
     Active Substance: ALLOPURINOL
     Dosage: 1 DF QD
     Route: 048
     Dates: start: 20160710
  5. ACICLOVIR [Concomitant]
     Active Substance: ACYCLOVIR
     Dosage: 1 DF TID
     Route: 048
     Dates: start: 20160710
  6. IMBRUVICA [Suspect]
     Active Substance: IBRUTINIB
     Indication: CHRONIC LYMPHOCYTIC LEUKAEMIA
     Route: 048
     Dates: start: 20160106
  7. COLACE [Concomitant]
     Active Substance: DOCUSATE SODIUM
     Dosage: 1 DF BID
     Route: 048
     Dates: start: 20160708
  8. SENNA [Concomitant]
     Active Substance: SENNA LEAF\SENNOSIDES\SENNOSIDES A AND B
     Dosage: 8.6 MG, PRN
     Route: 048
     Dates: start: 20160708
  9. ZOFRAN [Concomitant]
     Active Substance: ONDANSETRON HYDROCHLORIDE
     Indication: VOMITING
     Dosage: 1 DF, EVERY 8 HOURS AS NEEDED
     Route: 048
     Dates: start: 20151028
  10. ATIVAN [Concomitant]
     Active Substance: LORAZEPAM
     Indication: NAUSEA
     Dosage: 1 DF, EVERY EIGHT HOURS PRN
     Route: 048
     Dates: start: 20160710
  11. BACTRIM DS [Concomitant]
     Active Substance: SULFAMETHOXAZOLE\TRIMETHOPRIM
     Dosage: 1 DF, ON MONADY, WEDNESDAY AND FRIDAY
     Route: 048
     Dates: start: 20160710

REACTIONS (1)
  - Compression fracture [Unknown]

NARRATIVE: CASE EVENT DATE: 2016
